FAERS Safety Report 19969100 (Version 1)
Quarter: 2021Q4

REPORT INFORMATION
  Report Type: Spontaneous
  Country: US (occurrence: US)
  Receive Date: 20211018
  Receipt Date: 20211018
  Transmission Date: 20220303
  Serious: Yes (Hospitalization)
  Sender: FDA-Public Use
  Company Number: None

PATIENT
  Age: 37 Year
  Sex: Male

DRUGS (1)
  1. CAPECITABINE [Suspect]
     Active Substance: CAPECITABINE
     Route: 048
     Dates: start: 202110

REACTIONS (5)
  - Diarrhoea [None]
  - Fatigue [None]
  - Nausea [None]
  - Anaemia [None]
  - Colon cancer [None]

NARRATIVE: CASE EVENT DATE: 20210818
